FAERS Safety Report 5515399-2 (Version None)
Quarter: 2007Q4

REPORT INFORMATION
  Report Type: 
  Country: None (occurrence: None)
  Receive Date: 20071113
  Receipt Date: 20070207
  Transmission Date: 20080405
  Serious: No
  Sender: FDA-Public Use
  Company Number: A0638749A

PATIENT
  Age: 77 Year
  Sex: Male

DRUGS (7)
  1. COREG [Suspect]
     Indication: DRUG USE FOR UNKNOWN INDICATION
     Dosage: 6.25MG TWICE PER DAY
     Route: 048
  2. LISINOPRIL [Concomitant]
  3. FUROSEMIDE [Concomitant]
  4. ISOSORBIDE DINITRATE [Concomitant]
  5. NITROGLYCERIN [Concomitant]
  6. LOVASTATIN [Concomitant]
  7. ASPIRIN [Concomitant]

REACTIONS (2)
  - DIZZINESS [None]
  - FALL [None]
